FAERS Safety Report 19410542 (Version 2)
Quarter: 2021Q2

REPORT INFORMATION
  Report Type: Spontaneous
  Country: JP (occurrence: JP)
  Receive Date: 20210614
  Receipt Date: 20210615
  Transmission Date: 20210717
  Serious: Yes (Other)
  Sender: FDA-Public Use
  Company Number: JP-009507513-2106JPN000382J

PATIENT
  Age: 86 Year
  Sex: Female

DRUGS (8)
  1. ELDECALCITOL [Concomitant]
     Active Substance: ELDECALCITOL
     Dosage: UNK
     Route: 048
  2. NAPAGELN [Concomitant]
     Active Substance: FELBINAC
     Dosage: UNK
     Route: 003
  3. CARBAMAZEPINE. [Concomitant]
     Active Substance: CARBAMAZEPINE
     Dosage: UNK
     Route: 048
  4. STROMECTOL [Suspect]
     Active Substance: IVERMECTIN
     Indication: ACARODERMATITIS
     Dosage: 12 MILLIGRAM, ONCE
     Route: 048
  5. AMLODIPINE BESILATE;IRBESARTAN [Concomitant]
     Dosage: UNK
     Route: 048
  6. DOXAZOSIN MESILATE [Concomitant]
     Active Substance: DOXAZOSIN MESYLATE
     Dosage: UNK
     Route: 048
  7. RECALBON [MINODRONIC ACID] [Concomitant]
     Active Substance: MINODRONIC ACID
     Dosage: UNK
     Route: 048
  8. CHLORPHENESIN CARBAMATE [Concomitant]
     Active Substance: CHLORPHENESIN CARBAMATE
     Dosage: UNK
     Route: 048

REACTIONS (3)
  - Immunodeficiency [Unknown]
  - Blister [Not Recovered/Not Resolved]
  - Oedema peripheral [Not Recovered/Not Resolved]
